FAERS Safety Report 5322752-9 (Version None)
Quarter: 2007Q2

REPORT INFORMATION
  Report Type: 
  Country: None (occurrence: None)
  Receive Date: 20070223
  Receipt Date: 20061108
  Transmission Date: 20071010
  Serious: No
  Sender: FDA-Public Use
  Company Number: 06P-163-0350055-00

PATIENT
  Age: 63 Year
  Sex: Female

DRUGS (3)
  1. TRICOR [Suspect]
     Indication: HYPERLIPIDAEMIA
     Dosage: 145 MG, 1 IN 1 D, PER ORAL
     Route: 048
     Dates: start: 20061009, end: 20061023
  2. VYTORIN [Concomitant]
  3. STATIN [Concomitant]

REACTIONS (3)
  - ARTHRALGIA [None]
  - HEPATIC ENZYME INCREASED [None]
  - RHABDOMYOLYSIS [None]
